FAERS Safety Report 4916496-2 (Version None)
Quarter: 2006Q1

REPORT INFORMATION
  Report Type: 
  Country: None (occurrence: None)
  Receive Date: 20060220
  Receipt Date: 20060127
  Transmission Date: 20060701
  Serious: Yes (Hospitalization)
  Sender: FDA-Public Use
  Company Number: PHBS2006NO01562

PATIENT
  Age: 52 Year
  Sex: Female

DRUGS (1)
  1. ZOMETA [Suspect]
     Indication: FIBROUS DYSPLASIA OF BONE
     Dosage: 4 MG, ONCE/SINGLE
     Dates: start: 20050415, end: 20050415

REACTIONS (13)
  - DRY SKIN [None]
  - DYSPNOEA [None]
  - FACE OEDEMA [None]
  - GENERAL SYMPTOM [None]
  - HYPERSENSITIVITY [None]
  - MENOPAUSE [None]
  - PAIN [None]
  - PRURITUS [None]
  - RASH GENERALISED [None]
  - RASH MACULO-PAPULAR [None]
  - RESPIRATORY DISORDER [None]
  - SKIN EXFOLIATION [None]
  - SKIN REACTION [None]
